FAERS Safety Report 9925321 (Version 1)
Quarter: 2014Q1

REPORT INFORMATION
  Report Type: Spontaneous
  Country: US (occurrence: US)
  Receive Date: 20140226
  Receipt Date: 20140226
  Transmission Date: 20141002
  Serious: No
  Sender: FDA-Public Use
  Company Number: US-BAYER-2014-022809

PATIENT
  Age: 73 Year
  Sex: Male
  Weight: 70 kg

DRUGS (8)
  1. ALEVE CAPLET [Suspect]
     Indication: MUSCLE SPASMS
     Dosage: 1-2 UNITS, OTHER FREQUENCY
     Route: 048
     Dates: start: 2013
  2. ALEVE CAPLET [Suspect]
     Indication: MUSCLE SPASMS
     Dosage: 1-2UNITS
     Route: 048
     Dates: start: 2013
  3. ASPIRIN [Concomitant]
  4. POTASSIUM [Concomitant]
  5. VITAMIN E [Concomitant]
  6. BIOTIN [Concomitant]
  7. VITAMIN D [Concomitant]
  8. VITAMIN C [Concomitant]

REACTIONS (3)
  - Drug ineffective [None]
  - Extra dose administered [None]
  - Incorrect drug administration duration [None]
